FAERS Safety Report 5058145-1 (Version None)
Quarter: 2006Q3

REPORT INFORMATION
  Report Type: 
  Country: None (occurrence: None)
  Receive Date: 20060721
  Receipt Date: 20060713
  Transmission Date: 20061208
  Serious: Yes (Hospitalization)
  Sender: FDA-Public Use
  Company Number: US-MERCK-0607USA02551

PATIENT
  Sex: Male

DRUGS (2)
  1. PRIMAXIN [Suspect]
     Indication: KLEBSIELLA INFECTION
     Route: 041
     Dates: start: 20060705, end: 20060711
  2. PRIMAXIN [Suspect]
     Indication: ENTEROCOCCAL INFECTION
     Route: 041
     Dates: start: 20060705, end: 20060711

REACTIONS (1)
  - COMA [None]
